FAERS Safety Report 4961721-5 (Version None)
Quarter: 2006Q2

REPORT INFORMATION
  Report Type: 
  Country: None (occurrence: None)
  Receive Date: 20060404
  Receipt Date: 20060328
  Transmission Date: 20061013
  Serious: Yes (Hospitalization, Other)
  Sender: FDA-Public Use
  Company Number: PHBS2006BR04820

PATIENT
  Age: 41 Year
  Sex: Female
  Weight: 68 kg

DRUGS (2)
  1. PURAN T4 [Concomitant]
     Indication: HYPOTHYROIDISM
     Dosage: UNK, QD
     Route: 048
  2. ELIDEL [Suspect]
     Indication: VITILIGO
     Dosage: BID OR TID
     Route: 061
     Dates: start: 20051101

REACTIONS (9)
  - ARRHYTHMIA [None]
  - CARDIAC DISORDER [None]
  - CATHETERISATION CARDIAC [None]
  - DEFORMITY [None]
  - FEELING HOT [None]
  - OVARIAN CYST [None]
  - PRURITUS [None]
  - SKIN SWELLING [None]
  - URTICARIA [None]
